FAERS Safety Report 12873988 (Version 1)
Quarter: 2016Q4

REPORT INFORMATION
  Report Type: Spontaneous
  Country: US (occurrence: US)
  Receive Date: 20161021
  Receipt Date: 20161021
  Transmission Date: 20170207
  Serious: Yes (Hospitalization, Other)
  Sender: FDA-Public Use
  Company Number: US-JNJFOC-20161016261

PATIENT
  Age: 14 Year
  Sex: Male

DRUGS (4)
  1. USTEKINUMAB [Suspect]
     Active Substance: USTEKINUMAB
     Indication: COLITIS
     Route: 058
  2. USTEKINUMAB [Suspect]
     Active Substance: USTEKINUMAB
     Indication: COLITIS
     Dosage: 2MG/KG
     Route: 058
  3. BUDESONIDE. [Concomitant]
     Active Substance: BUDESONIDE
     Indication: COLITIS
     Route: 065
  4. BUDESONIDE. [Concomitant]
     Active Substance: BUDESONIDE
     Indication: COLITIS
     Route: 065

REACTIONS (8)
  - Chest pain [Unknown]
  - Therapeutic response unexpected [Unknown]
  - Staphylococcal infection [Unknown]
  - Dyspnoea [Unknown]
  - Off label use [Unknown]
  - Infection [Unknown]
  - Nasal inflammation [Recovered/Resolved]
  - Product use issue [Unknown]
